FAERS Safety Report 4539523-3 (Version None)
Quarter: 2004Q4

REPORT INFORMATION
  Report Type: 
  Country: None (occurrence: None)
  Receive Date: 20041222
  Receipt Date: 20041207
  Transmission Date: 20050328
  Serious: Yes (Hospitalization)
  Sender: FDA-Public Use
  Company Number: 206422

PATIENT
  Age: 46 Year
  Sex: Female
  Weight: 72.5755 kg

DRUGS (5)
  1. AVONEX [Suspect]
     Indication: MULTIPLE SCLEROSIS
     Dosage: SEE IMAGE
     Route: 030
     Dates: start: 20001101, end: 20030801
  2. AVONEX [Suspect]
     Indication: MULTIPLE SCLEROSIS
     Dosage: SEE IMAGE
     Route: 030
     Dates: start: 20030801, end: 20040116
  3. MULTI-VITAMIN [Concomitant]
  4. DETROL [Concomitant]
  5. MOTRIN [Concomitant]

REACTIONS (4)
  - BREAST CANCER STAGE II [None]
  - DIFFICULTY IN WALKING [None]
  - FALL [None]
  - MUSCULAR WEAKNESS [None]
